FAERS Safety Report 16486689 (Version 1)
Quarter: 2019Q2

REPORT INFORMATION
  Report Type: Spontaneous
  Country: GB (occurrence: GB)
  Receive Date: 20190627
  Receipt Date: 20190627
  Transmission Date: 20190711
  Serious: Yes (Hospitalization)
  Sender: FDA-Public Use
  Company Number: GB-TEVA-2019-GB-1070097

PATIENT
  Age: 81 Year
  Sex: Male
  Weight: 82.55 kg

DRUGS (4)
  1. BRALTUS [Concomitant]
     Active Substance: TIOTROPIUM BROMIDE
     Dosage: PUFF
  2. LANSOPRAZOLE. [Concomitant]
     Active Substance: LANSOPRAZOLE
  3. NITROFURANTOIN MACROCRYSTALS [Concomitant]
     Active Substance: NITROFURANTOIN
  4. TRIMETHOPRIM. [Suspect]
     Active Substance: TRIMETHOPRIM
     Indication: URINARY TRACT INFECTION
     Route: 048
     Dates: start: 20190522

REACTIONS (4)
  - Asthenia [Not Recovered/Not Resolved]
  - Testicular swelling [Not Recovered/Not Resolved]
  - Genital erythema [Not Recovered/Not Resolved]
  - Testicular pain [Not Recovered/Not Resolved]

NARRATIVE: CASE EVENT DATE: 20190523
